FAERS Safety Report 5719702-X (Version None)
Quarter: 2008Q2

REPORT INFORMATION
  Report Type: 
  Country: None (occurrence: None)
  Receive Date: 20080425
  Receipt Date: 20080425
  Transmission Date: 20081010
  Serious: Yes (Hospitalization)
  Sender: FDA-Public Use
  Company Number: None

PATIENT
  Age: 61 Year
  Sex: Male

DRUGS (1)
  1. PRAZOSIN HCL [Suspect]
     Indication: NIGHTMARE
     Dosage: 5 MG AT BEDTIME PO
     Route: 048
     Dates: start: 20071120, end: 20080310

REACTIONS (3)
  - CONVULSION [None]
  - DIZZINESS [None]
  - HYPOTENSION [None]
